FAERS Safety Report 23537182 (Version 4)
Quarter: 2024Q4

REPORT INFORMATION
  Report Type: Report from Study
  Country: US (occurrence: US)
  Receive Date: 20240219
  Receipt Date: 20241016
  Transmission Date: 20250115
  Serious: No
  Sender: DR REDDYS
  Company Number: US-E2BLSMVVAL-SPO/USA/24/0002585

PATIENT
  Age: 52 Year
  Sex: Male
  Weight: 149 kg

DRUGS (8)
  1. JAVYGTOR [Suspect]
     Active Substance: SAPROPTERIN DIHYDROCHLORIDE
     Indication: Phenylketonuria
     Dosage: 30 TABLETS ONCE DAILY WITH MEAL
     Route: 048
  2. Aspirin ec 81 mg tablet [Concomitant]
     Indication: Product used for unknown indication
     Route: 065
  3. paliperidone er 1.5 mg tab [Concomitant]
     Indication: Product used for unknown indication
     Route: 065
  4. SAPROPTERIN DIHYDROCHLORIDE [Concomitant]
     Active Substance: SAPROPTERIN DIHYDROCHLORIDE
     Indication: Product used for unknown indication
     Route: 065
  5. glytactin 20pe bettermilk lite [Concomitant]
     Indication: Product used for unknown indication
     Route: 065
  6. VITAMIN B12 [Concomitant]
     Active Substance: CYANOCOBALAMIN
     Indication: Product used for unknown indication
     Route: 065
  7. VITAMIN D3 [Concomitant]
     Active Substance: CHOLECALCIFEROL
     Indication: Product used for unknown indication
     Route: 065
  8. OXCARBAZEPINE [Concomitant]
     Active Substance: OXCARBAZEPINE
     Indication: Product used for unknown indication
     Route: 065

REACTIONS (5)
  - Accident [Unknown]
  - Contusion [Unknown]
  - Scratch [Unknown]
  - Wrong technique in product usage process [Unknown]
  - Treatment noncompliance [Unknown]
